FAERS Safety Report 11366235 (Version 1)
Quarter: 2015Q3

REPORT INFORMATION
  Report Type: Spontaneous
  Country: US (occurrence: US)
  Receive Date: 20150811
  Receipt Date: 20150811
  Transmission Date: 20151125
  Serious: No
  Sender: FDA-Public Use
  Company Number: US-GILEAD-2015-0166495

PATIENT
  Sex: Female

DRUGS (3)
  1. XANAX [Concomitant]
     Active Substance: ALPRAZOLAM
  2. OXYCODONE [Interacting]
     Active Substance: OXYCODONE
     Indication: PAIN
     Route: 065
  3. HARVONI [Suspect]
     Active Substance: LEDIPASVIR\SOFOSBUVIR
     Indication: PRODUCT USED FOR UNKNOWN INDICATION
     Route: 065

REACTIONS (8)
  - Irritability [Unknown]
  - Nervousness [Unknown]
  - Depression [Unknown]
  - Social avoidant behaviour [Unknown]
  - Drug interaction [Unknown]
  - Impatience [Unknown]
  - Insomnia [Unknown]
  - Pain [Unknown]
